FAERS Safety Report 4700825-9 (Version None)
Quarter: 2005Q2

REPORT INFORMATION
  Report Type: 
  Country: None (occurrence: None)
  Receive Date: 20050114
  Receipt Date: 20050114
  Transmission Date: 20051028
  Serious: No
  Sender: FDA-Public Use
  Company Number: None

PATIENT
  Sex: Male
  Weight: 68.0396 kg

DRUGS (7)
  1. TEGRETOL [Suspect]
     Indication: CONVULSION
     Dosage: 200MG 5 1/2 PER DAY
  2. COUMADIN [Concomitant]
  3. MEBERAL [Concomitant]
  4. NEORAL [Concomitant]
  5. PREDNISONE TAB [Concomitant]
  6. SEPTRA [Concomitant]
  7. ZANTAC [Concomitant]

REACTIONS (1)
  - NO ADVERSE EFFECT [None]
